FAERS Safety Report 23710999 (Version 1)
Quarter: 2024Q2

REPORT INFORMATION
  Report Type: Spontaneous
  Country: FR (occurrence: FR)
  Receive Date: 20240405
  Receipt Date: 20240405
  Transmission Date: 20240716
  Serious: Yes (Hospitalization)
  Sender: FDA-Public Use
  Company Number: FR-SUN PHARMACEUTICAL INDUSTRIES LTD-2024RR-440928

PATIENT
  Age: 5 Year
  Sex: Male
  Weight: 19 kg

DRUGS (6)
  1. OLANZAPINE [Suspect]
     Active Substance: OLANZAPINE
     Indication: Accidental exposure to product by child
     Dosage: UNK
     Route: 048
     Dates: start: 20230608, end: 20230608
  2. HALDOL [Suspect]
     Active Substance: HALOPERIDOL
     Indication: Accidental exposure to product by child
     Dosage: UNK
     Route: 048
     Dates: start: 20230608, end: 20230608
  3. ALPRAZOLAM [Suspect]
     Active Substance: ALPRAZOLAM
     Indication: Accidental exposure to product by child
     Dosage: UNK
     Route: 048
     Dates: start: 20230608, end: 20230608
  4. LOXAPINE [Suspect]
     Active Substance: LOXAPINE
     Indication: Accidental exposure to product by child
     Dosage: UNK
     Route: 048
     Dates: start: 20230608, end: 20230608
  5. TROPATEPINE HYDROCHLORIDE [Suspect]
     Active Substance: TROPATEPINE HYDROCHLORIDE
     Indication: Accidental exposure to product by child
     Dosage: UNK
     Route: 048
     Dates: start: 20230608, end: 20230608
  6. DULOXETINE [Suspect]
     Active Substance: DULOXETINE
     Indication: Accidental exposure to product by child
     Dosage: UNK
     Route: 048
     Dates: start: 20230608, end: 20230608

REACTIONS (2)
  - Accidental exposure to product by child [Recovered/Resolved]
  - Dyskinesia [Recovered/Resolved]

NARRATIVE: CASE EVENT DATE: 20230608
